FAERS Safety Report 9037002 (Version 2)
Quarter: 2013Q1

REPORT INFORMATION
  Report Type: Spontaneous
  Country: CA (occurrence: None)
  Receive Date: 20121217
  Receipt Date: 20121231
  Transmission Date: 20140127
  Serious: Yes (Other)
  Sender: FDA-Public Use
  Company Number: 2011030116

PATIENT
  Age: 53 Year
  Sex: Male

DRUGS (1)
  1. PRIVIGEN (IMMUNE GLOBULIN INTRAVENOUS (HUMAN 10% LIQUID) [Suspect]
     Route: 042
     Dates: start: 20110907, end: 20110907

REACTIONS (9)
  - Transfusion-associated dyspnoea [None]
  - Chills [None]
  - Nausea [None]
  - Vomiting [None]
  - Reaction to drug excipients [None]
  - Hypertension [None]
  - Tachycardia [None]
  - Anxiety [None]
  - Oxygen saturation decreased [None]
